FAERS Safety Report 19505745 (Version 3)
Quarter: 2021Q3

REPORT INFORMATION
  Report Type: Report from Study
  Country: US (occurrence: US)
  Receive Date: 20210708
  Receipt Date: 20210818
  Transmission Date: 20211014
  Serious: No
  Sender: FDA-Public Use
  Company Number: NVSC2021US146444

PATIENT
  Sex: Female

DRUGS (1)
  1. TRAVATAN Z [Suspect]
     Active Substance: TRAVOPROST
     Indication: OPEN ANGLE GLAUCOMA
     Dosage: 0.004 %, QD
     Route: 047
     Dates: start: 2019

REACTIONS (3)
  - Expired product administered [Unknown]
  - Intraocular pressure increased [Unknown]
  - Headache [Unknown]
